FAERS Safety Report 8833193 (Version 1)
Quarter: 2012Q4

REPORT INFORMATION
  Report Type: 
  Country: US (occurrence: US)
  Receive Date: 20121010
  Receipt Date: 20121010
  Transmission Date: 20130627
  Serious: No
  Sender: FDA-Public Use
  Company Number: US-PFIZER INC-2012249546

PATIENT
  Sex: Female

DRUGS (3)
  1. ADVIL [Suspect]
     Dosage: UNK
  2. IBUPROFEN [Suspect]
     Dosage: 800 mg, UNK
  3. TYLENOL [Suspect]
     Dosage: UNK

REACTIONS (1)
  - Drug ineffective [Unknown]
